FAERS Safety Report 9302595 (Version 6)
Quarter: 2013Q4

REPORT INFORMATION
  Report Type: Spontaneous
  Country: US (occurrence: None)
  Receive Date: 20130516
  Receipt Date: 20131107
  Transmission Date: 20140711
  Serious: Yes (Death, Hospitalization, Disabling, Other)
  Sender: FDA-Public Use
  Company Number: ACO_36153_2013

PATIENT
  Age: 51 Year
  Sex: Female

DRUGS (4)
  1. AMPYRA [Suspect]
     Indication: MULTIPLE SCLEROSIS
  2. GABAPENTIN (GABAPENTIN) [Suspect]
     Indication: NEUROPATHY PERIPHERAL
     Route: 048
  3. PROTONIX [Suspect]
     Indication: GASTRITIS
     Route: 048
  4. TYSABRI (NATALIZUMAB) [Concomitant]

REACTIONS (51)
  - Death [None]
  - Cardio-respiratory arrest [None]
  - Septic shock [None]
  - Hypovolaemic shock [None]
  - Acute hepatic failure [None]
  - Cirrhosis alcoholic [None]
  - Sinus tachycardia [None]
  - Heart rate decreased [None]
  - Acute prerenal failure [None]
  - Lobar pneumonia [None]
  - Atelectasis [None]
  - Embolism [None]
  - Hepatitis alcoholic [None]
  - Hepatic steatosis [None]
  - Hypoglycaemia [None]
  - Hyponatraemia [None]
  - Muscular weakness [None]
  - Syncope [None]
  - Failure to thrive [None]
  - Malnutrition [None]
  - Pancytopenia [None]
  - Hypotension [None]
  - Hypertension [None]
  - Pain in extremity [None]
  - Arthralgia [None]
  - Fall [None]
  - Presyncope [None]
  - Faecal incontinence [None]
  - Decreased appetite [None]
  - Ecchymosis [None]
  - Contusion [None]
  - Cirrhosis alcoholic [None]
  - Loss of consciousness [None]
  - Exophthalmos [None]
  - Petechiae [None]
  - Escherichia test positive [None]
  - Klebsiella test positive [None]
  - Mean cell volume increased [None]
  - Mean cell haemoglobin increased [None]
  - Red cell distribution width increased [None]
  - Multiple sclerosis [None]
  - Polyneuropathy alcoholic [None]
  - Acidosis [None]
  - Hepatitis alcoholic [None]
  - Urosepsis [None]
  - General physical health deterioration [None]
  - Bedridden [None]
  - Urinary tract infection [None]
  - Gait disturbance [None]
  - Back pain [None]
  - Nausea [None]
